FAERS Safety Report 16270508 (Version 4)
Quarter: 2020Q3

REPORT INFORMATION
  Report Type: Spontaneous
  Country: US (occurrence: US)
  Receive Date: 20190503
  Receipt Date: 20200930
  Transmission Date: 20201102
  Serious: Yes (Other)
  Sender: FDA-Public Use
  Company Number: US-GILEAD-2019-0405403

PATIENT
  Sex: Male
  Weight: 88.44 kg

DRUGS (31)
  1. CIALIS [Concomitant]
     Active Substance: TADALAFIL
  2. ACETAMINOPHEN + COD. PHOSP. [Concomitant]
     Active Substance: ACETAMINOPHEN\CODEINE PHOSPHATE
  3. JUBLIA [Concomitant]
     Active Substance: EFINACONAZOLE
  4. ODEFSEY [Concomitant]
     Active Substance: EMTRICITABINE\RILPIVIRINE HYDROCHLORIDE\TENOFOVIR ALAFENAMIDE FUMARATE
  5. IBUPROFEN. [Concomitant]
     Active Substance: IBUPROFEN
  6. VITAMIN D2 [Concomitant]
     Active Substance: ERGOCALCIFEROL
  7. PENICILLIN NOS [Concomitant]
     Active Substance: PENICILLIN
     Indication: PRODUCT USED FOR UNKNOWN INDICATION
     Route: 065
  8. PAXIL [Concomitant]
     Active Substance: PAROXETINE HYDROCHLORIDE
  9. KETOCONAZOLE. [Concomitant]
     Active Substance: KETOCONAZOLE
  10. PREDNISONE. [Concomitant]
     Active Substance: PREDNISONE
  11. GAVILYTE G [Concomitant]
     Active Substance: POLYETHYLENE GLYCOL 3350\POTASSIUM CHLORIDE\SODIUM BICARBONATE\SODIUM CHLORIDE\SODIUM SULFATE ANHYDROUS
  12. TERBINAFINE. [Concomitant]
     Active Substance: TERBINAFINE
  13. CICLOPIROX. [Concomitant]
     Active Substance: CICLOPIROX
  14. AZITHROMYCIN ANHYDROUS. [Concomitant]
     Active Substance: AZITHROMYCIN ANHYDROUS
  15. ZOLOFT [Concomitant]
     Active Substance: SERTRALINE HYDROCHLORIDE
  16. VIAGRA [Concomitant]
     Active Substance: SILDENAFIL CITRATE
  17. TRETINOIN. [Concomitant]
     Active Substance: TRETINOIN
  18. ATRIPLA [Suspect]
     Active Substance: EFAVIRENZ\EMTRICITABINE\TENOFOVIR DISOPROXIL FUMARATE
     Indication: HIV INFECTION
     Dosage: UNK
     Route: 048
     Dates: start: 2006, end: 201610
  19. MULTIVITAMINS [VITAMINS NOS] [Concomitant]
     Active Substance: VITAMINS
  20. METHYLPHENIDATE. [Concomitant]
     Active Substance: METHYLPHENIDATE
  21. PROZAC [Concomitant]
     Active Substance: FLUOXETINE HYDROCHLORIDE
  22. AMOXICILLIN. [Concomitant]
     Active Substance: AMOXICILLIN
  23. AMMONIUM LACTATE. [Concomitant]
     Active Substance: AMMONIUM LACTATE
  24. PROAIR HFA [Concomitant]
     Active Substance: ALBUTEROL SULFATE
  25. PROVENTIL HFA [Concomitant]
     Active Substance: ALBUTEROL SULFATE
  26. VITAMIN B COMPLEX NOS [Concomitant]
     Active Substance: CYANOCOBALAMIN\PYRIDOXINE HYDROCHLORIDE\RIBOFLAVIN\SODIUM PANTOTHENATE\THIAMINE HYDROCHLORIDE\VITAMIN B COMPLEX
  27. CLINDAMYCIN. [Concomitant]
     Active Substance: CLINDAMYCIN
  28. ESCITALOPRAM [Concomitant]
     Active Substance: ESCITALOPRAM OXALATE
  29. BISACODYL. [Concomitant]
     Active Substance: BISACODYL
  30. VITAMIN D3 [Concomitant]
     Active Substance: CHOLECALCIFEROL
  31. LEXAPRO [Concomitant]
     Active Substance: ESCITALOPRAM OXALATE

REACTIONS (11)
  - Tooth loss [Recovered/Resolved]
  - Emotional distress [Not Recovered/Not Resolved]
  - Osteopenia [Unknown]
  - Bone density decreased [Not Recovered/Not Resolved]
  - Foot fracture [Recovered/Resolved]
  - Depression [Not Recovered/Not Resolved]
  - Anxiety [Not Recovered/Not Resolved]
  - Pain [Not Recovered/Not Resolved]
  - Bone loss [Unknown]
  - Anhedonia [Unknown]
  - Economic problem [Unknown]

NARRATIVE: CASE EVENT DATE: 2008
